FAERS Safety Report 13120745 (Version 1)
Quarter: 2017Q1

REPORT INFORMATION
  Report Type: Spontaneous
  Country: US (occurrence: US)
  Receive Date: 20170113
  Receipt Date: 20170113
  Transmission Date: 20170428
  Serious: No
  Sender: FDA-Public Use
  Company Number: None

PATIENT
  Age: 49 Year
  Sex: Male
  Weight: 122.7 kg

DRUGS (1)
  1. HYDROCHLOROTHIAZIDE AND LISINOPRIL [Suspect]
     Active Substance: HYDROCHLOROTHIAZIDE\LISINOPRIL
     Indication: HYPERTENSION
     Route: 048
     Dates: start: 20160302, end: 20160527

REACTIONS (4)
  - Angioedema [None]
  - Swollen tongue [None]
  - Dysarthria [None]
  - Drug hypersensitivity [None]

NARRATIVE: CASE EVENT DATE: 20160527
